FAERS Safety Report 8322129-8 (Version None)
Quarter: 2012Q2

REPORT INFORMATION
  Report Type: 
  Country: None (occurrence: None)
  Receive Date: 20120430
  Receipt Date: 20111107
  Transmission Date: 20120825
  Serious: Yes (Life-Threatening, Hospitalization)
  Sender: FDA-Public Use
  Company Number: US-ROCHE-1011653

PATIENT
  Age: 73 Year

DRUGS (5)
  1. AVASTIN [Suspect]
     Indication: BREAST CANCER METASTATIC
     Route: 042
     Dates: start: 20081231
  2. HERCEPTIN [Suspect]
     Dosage: MAINTAINANCE DOSE
     Route: 042
     Dates: start: 20081031
  3. PACLITAXEL [Suspect]
     Indication: BREAST CANCER METASTATIC
     Route: 042
     Dates: start: 20081031
  4. CARBOPLATIN [Suspect]
     Indication: BREAST CANCER METASTATIC
     Route: 042
     Dates: start: 20081031
  5. HERCEPTIN [Suspect]
     Indication: BREAST CANCER METASTATIC
     Dosage: LOADING DOSE
     Route: 042
     Dates: start: 20081031

REACTIONS (6)
  - DEHYDRATION [None]
  - HYPERKALAEMIA [None]
  - HAEMATURIA [None]
  - BLOOD CREATININE INCREASED [None]
  - DIARRHOEA [None]
  - RENAL FAILURE ACUTE [None]
